FAERS Safety Report 13906731 (Version 1)
Quarter: 2017Q3

REPORT INFORMATION
  Report Type: Spontaneous
  Country: US (occurrence: US)
  Receive Date: 20170825
  Receipt Date: 20170825
  Transmission Date: 20171127
  Serious: Yes (Life-Threatening)
  Sender: FDA-Public Use
  Company Number: PHHY2017US124561

PATIENT
  Age: 56 Year
  Sex: Male

DRUGS (4)
  1. GENTAMYCIN [Suspect]
     Active Substance: GENTAMICIN
     Indication: ENDOCARDITIS
  2. AMPICILLIN [Suspect]
     Active Substance: AMPICILLIN
     Indication: ENDOCARDITIS
  3. AMPICILLIN [Suspect]
     Active Substance: AMPICILLIN
     Indication: ENTEROCOCCAL BACTERAEMIA
     Dosage: UNK
     Route: 042
  4. GENTAMYCIN [Suspect]
     Active Substance: GENTAMICIN
     Indication: ENTEROCOCCAL BACTERAEMIA
     Dosage: UNK
     Route: 042

REACTIONS (3)
  - Acute myocardial infarction [Recovering/Resolving]
  - Chest pain [Recovering/Resolving]
  - Asthenia [Recovering/Resolving]
